FAERS Safety Report 16244394 (Version 1)
Quarter: 2019Q2

REPORT INFORMATION
  Report Type: Report from Study
  Country: IT (occurrence: IT)
  Receive Date: 20190426
  Receipt Date: 20190426
  Transmission Date: 20190711
  Serious: Yes (Other)
  Sender: FDA-Public Use
  Company Number: IT-MYLANLABS-2019M1038179

PATIENT
  Age: 68 Year
  Sex: Female
  Weight: 77 kg

DRUGS (14)
  1. LETROZOLE. [Suspect]
     Active Substance: LETROZOLE
     Indication: BREAST CANCER
     Dosage: 2.5 MILLIGRAM, QD
     Route: 048
     Dates: start: 20180209
  2. EUTIROX [Concomitant]
     Active Substance: LEVOTHYROXINE SODIUM
     Dosage: ONGOING = CHECKED
     Route: 065
  3. DOCETAXEL. [Suspect]
     Active Substance: DOCETAXEL
     Dosage: MOST RECENT DOSE PRIOR TO THE EVENT WAS RECEIVED ON 06/12/2017
     Route: 042
     Dates: end: 20171206
  4. TRASTUZUMAB. [Suspect]
     Active Substance: TRASTUZUMAB
     Dosage: MOST RECENT DOSE PRIOR TO THE EVENT WAS RECEIVED ON 05/01/2018
     Route: 042
     Dates: end: 20180105
  5. DOCETAXEL. [Suspect]
     Active Substance: DOCETAXEL
     Indication: BREAST CANCER
     Dosage: 75 MILLIGRAM/SQ. METER, Q3W
     Route: 042
     Dates: start: 20170726, end: 20170906
  6. PERTUZUMAB. [Suspect]
     Active Substance: PERTUZUMAB
     Indication: BREAST CANCER
     Dosage: 840 MILLIGRAM, Q3W
     Route: 042
     Dates: start: 20170818, end: 20170818
  7. PERTUZUMAB. [Suspect]
     Active Substance: PERTUZUMAB
     Dosage: MOST RECENT DOSE PRIOR TO THE EVENT WAS RECEIVED ON 05/01/2018
     Dates: end: 20180105
  8. LOPERAMIDE [Concomitant]
     Active Substance: LOPERAMIDE
     Dosage: ONGOING = CHECKED
     Route: 065
     Dates: start: 20180126
  9. SERTRALINE [Concomitant]
     Active Substance: SERTRALINE HYDROCHLORIDE
     Indication: MAJOR DEPRESSION
     Dosage: ONGOING = CHECKED
     Route: 065
     Dates: start: 20171113
  10. TRASTUZUMAB. [Suspect]
     Active Substance: TRASTUZUMAB
     Indication: BREAST CANCER
     Dosage: 600 MILLIGRAM, Q3W
     Route: 042
     Dates: start: 20170726, end: 20170726
  11. PRITOR PLUS [Concomitant]
     Active Substance: TELMISARTAN
     Dosage: ONGOING = CHECKED
     Route: 065
     Dates: start: 20100310
  12. KCL [Concomitant]
     Active Substance: POTASSIUM CHLORIDE
     Dosage: ONGOING = CHECKED
     Route: 065
     Dates: start: 20180427
  13. LOPERAMIDE [Concomitant]
     Active Substance: LOPERAMIDE
     Indication: DIARRHOEA
     Dosage: ONGOING = CHECKED
     Route: 065
     Dates: start: 20170906
  14. DELORAZEPAM [Concomitant]
     Active Substance: DELORAZEPAM
     Dosage: ONGOING = CHECKED
     Route: 065
     Dates: start: 20180405

REACTIONS (1)
  - Paralysis recurrent laryngeal nerve [Recovered/Resolved]

NARRATIVE: CASE EVENT DATE: 20180910
